FAERS Safety Report 25395660 (Version 1)
Quarter: 2025Q2

REPORT INFORMATION
  Report Type: Spontaneous
  Country: DE (occurrence: DE)
  Receive Date: 20250604
  Receipt Date: 20250604
  Transmission Date: 20250717
  Serious: Yes (Other)
  Sender: AMGEN
  Company Number: DE-002147023-NVSC2025DE088482

PATIENT
  Sex: Female

DRUGS (1)
  1. AIMOVIG [Suspect]
     Active Substance: ERENUMAB-AOOE
     Indication: Migraine with aura
     Route: 065
     Dates: start: 20221206, end: 202410

REACTIONS (2)
  - Loss of consciousness [Unknown]
  - Aura [Recovering/Resolving]

NARRATIVE: CASE EVENT DATE: 20240901
